FAERS Safety Report 4960641-X (Version None)
Quarter: 2006Q2

REPORT INFORMATION
  Report Type: 
  Country: None (occurrence: None)
  Receive Date: 20060403
  Receipt Date: 20051004
  Transmission Date: 20061013
  Serious: Yes (Hospitalization)
  Sender: FDA-Public Use
  Company Number: US-MERCK-0510USA03506

PATIENT
  Age: 60 Year
  Sex: Male
  Weight: 82 kg

DRUGS (4)
  1. VIOXX [Suspect]
     Indication: ARTHRITIS
     Route: 048
     Dates: start: 20021001, end: 20040501
  2. VIOXX [Suspect]
     Route: 048
     Dates: start: 20021001, end: 20040501
  3. VIOXX [Suspect]
     Route: 048
     Dates: start: 20021001, end: 20040501
  4. VIOXX [Suspect]
     Route: 048
     Dates: start: 20021001, end: 20040501

REACTIONS (10)
  - ADVERSE EVENT [None]
  - ANAEMIA [None]
  - CARDIAC MURMUR [None]
  - CARDIOVASCULAR DISORDER [None]
  - CHEST PAIN [None]
  - DEEP VEIN THROMBOSIS [None]
  - EMBOLISM [None]
  - PAIN IN EXTREMITY [None]
  - PRESCRIBED OVERDOSE [None]
  - THROMBOSIS [None]
